FAERS Safety Report 6582943-6 (Version None)
Quarter: 2010Q1

REPORT INFORMATION
  Report Type: 
  Country: None (occurrence: None)
  Receive Date: 20100216
  Receipt Date: 20100211
  Transmission Date: 20100710
  Serious: Yes (Congenital Anomaly, Other)
  Sender: FDA-Public Use
  Company Number: AU-BRISTOL-MYERS SQUIBB COMPANY-14918437

PATIENT
  Age: 1 Year
  Sex: Female
  Weight: 3 kg

DRUGS (20)
  1. EFAVIRENZ [Suspect]
     Route: 064
  2. PARACETAMOL [Suspect]
     Route: 064
  3. TRUVADA [Suspect]
     Route: 064
  4. RETROVIR [Suspect]
     Dosage: 1ST COURSE TAKEN ORALLY 2ND COURSE TAKEN IV
     Route: 064
  5. EMTRIVA [Suspect]
     Route: 064
  6. VIREAD [Suspect]
     Route: 064
  7. AMPHETAMINE SULFATE [Suspect]
     Route: 064
  8. BENZODIAZEPINES [Suspect]
     Route: 064
  9. DIAZEPAM [Suspect]
     Route: 064
  10. OXAZEPAM [Suspect]
     Route: 064
  11. NITRAZEPAM [Suspect]
     Route: 064
  12. MIRTAZAPINE [Suspect]
     Route: 064
  13. ETHANOL [Suspect]
     Route: 064
  14. CODEINE SULFATE [Suspect]
     Route: 064
  15. OLANZAPINE [Suspect]
     Route: 064
  16. ANTIDEPRESSANT [Suspect]
     Route: 064
  17. ALCOHOL [Suspect]
     Route: 064
  18. CIGARETTES [Suspect]
     Route: 064
  19. CANNABIS [Suspect]
  20. MARIJUANA [Suspect]

REACTIONS (3)
  - CONGENITAL TRICUSPID VALVE STENOSIS [None]
  - HYPOPLASTIC RIGHT HEART SYNDROME [None]
  - MATERNAL DRUGS AFFECTING FOETUS [None]
